FAERS Safety Report 5263898-3 (Version None)
Quarter: 2007Q1

REPORT INFORMATION
  Report Type: 
  Country: None (occurrence: None)
  Receive Date: 20070313
  Receipt Date: 20070306
  Transmission Date: 20070707
  Serious: Yes (Other)
  Sender: FDA-Public Use
  Company Number: US-ELI_LILLY_AND_COMPANY-US200703001344

PATIENT
  Age: 63 Year
  Sex: Male
  Weight: 84.353 kg

DRUGS (9)
  1. GEMZAR [Suspect]
     Indication: BLADDER CANCER STAGE IV
     Route: 042
     Dates: start: 20050309
  2. CISPLATIN [Concomitant]
     Indication: BLADDER CANCER STAGE IV
     Dates: start: 20050309
  3. TAXOTERE [Concomitant]
     Indication: BLADDER CANCER STAGE IV
  4. CARBOPLATIN [Concomitant]
     Indication: BLADDER CANCER STAGE IV
  5. VITAMINS NOS [Concomitant]
  6. ASPIRIN [Concomitant]
     Dosage: UNK, DAILY (1/D)
  7. NIACIN [Concomitant]
  8. XANAX [Concomitant]
     Dosage: UNK, EACH EVENING
  9. MARIJUANA [Concomitant]
     Dosage: UNK, OTHER

REACTIONS (7)
  - ARTERIOSCLEROSIS CORONARY ARTERY [None]
  - BLADDER CANCER [None]
  - CARDIOMEGALY [None]
  - HYDROCELE [None]
  - MALIGNANT NEOPLASM PROGRESSION [None]
  - PAIN [None]
  - SPLENOMEGALY [None]
